FAERS Safety Report 5487841-7 (Version None)
Quarter: 2007Q4

REPORT INFORMATION
  Report Type: 
  Country: None (occurrence: None)
  Receive Date: 20071017
  Receipt Date: 20071008
  Transmission Date: 20080405
  Serious: Yes (Hospitalization, Other)
  Sender: FDA-Public Use
  Company Number: FR-JNJFOC-20071001212

PATIENT
  Age: 35 Year
  Sex: Male

DRUGS (1)
  1. REMICADE [Suspect]
     Indication: ANKYLOSING SPONDYLITIS
     Route: 042

REACTIONS (6)
  - BACK PAIN [None]
  - CHEILITIS [None]
  - CHEST DISCOMFORT [None]
  - INFUSION RELATED REACTION [None]
  - LIP SWELLING [None]
  - PANCREATITIS ACUTE [None]
